FAERS Safety Report 25940908 (Version 1)
Quarter: 2025Q4

REPORT INFORMATION
  Report Type: Spontaneous
  Country: US (occurrence: None)
  Receive Date: 20251019
  Receipt Date: 20251019
  Transmission Date: 20260118
  Serious: Yes (Hospitalization)
  Sender: FDA-CTU
  Company Number: None

PATIENT
  Sex: Female

DRUGS (7)
  1. INFLECTRA [Suspect]
     Active Substance: INFLIXIMAB-DYYB
     Indication: Colitis ulcerative
     Dosage: OTHER STRENGTH : 100MG/VL ;?OTHER FREQUENCY : EVERY 8 WEEKS;?
     Route: 042
     Dates: start: 20250304
  2. SODIUM CHLOR (100ML/BAG) [Concomitant]
  3. NORMAL SALINE FLUSH (5ML) [Concomitant]
  4. STERILE WATER INJ (10ML/VL) [Concomitant]
  5. DIPHENHYDRAMINE SDV (1ML/VL) [Concomitant]
  6. SOLU MEDROL SDV (1ML/A-O-V) [Concomitant]
  7. SODIUM CHLOR (250ML/BAG) [Concomitant]

REACTIONS (2)
  - Condition aggravated [None]
  - Colitis ulcerative [None]
